FAERS Safety Report 23778734 (Version 3)
Quarter: 2024Q2

REPORT INFORMATION
  Report Type: Spontaneous
  Country: JP (occurrence: JP)
  Receive Date: 20240424
  Receipt Date: 20240601
  Transmission Date: 20240716
  Serious: Yes (Other)
  Sender: FDA-Public Use
  Company Number: JP-UCBJ-CD202402882UCBPHAPROD

PATIENT
  Age: 10 Year
  Sex: Female

DRUGS (4)
  1. VIMPAT [Suspect]
     Active Substance: LACOSAMIDE
     Indication: Epilepsy
     Dosage: 0.9G IN THE MORNING AND 0.7G IN THE EVENING
     Route: 048
     Dates: end: 20231130
  2. VIMPAT [Suspect]
     Active Substance: LACOSAMIDE
     Dosage: 1.1G IN THE MORNING AND 1.0G IN THE EVENING
     Route: 048
     Dates: start: 20231201, end: 20240131
  3. VIMPAT [Suspect]
     Active Substance: LACOSAMIDE
     Dosage: 1.1G IN THE MORNING AND 1G IN THE EVENING
     Route: 048
  4. VIMPAT [Suspect]
     Active Substance: LACOSAMIDE
     Dosage: 1.1G IN THE MORNING AND 1.5G IN THE EVENING
     Route: 048
     Dates: start: 20240201

REACTIONS (4)
  - Epilepsy [Recovered/Resolved]
  - Somnolence [Recovered/Resolved]
  - Somnambulism [Recovered/Resolved]
  - Off label use [Unknown]

NARRATIVE: CASE EVENT DATE: 20240201
